FAERS Safety Report 5701275-9 (Version None)
Quarter: 2008Q2

REPORT INFORMATION
  Report Type: 
  Country: None (occurrence: None)
  Receive Date: 20080410
  Receipt Date: 20080401
  Transmission Date: 20081010
  Serious: Yes (Other)
  Sender: FDA-Public Use
  Company Number: BR-PFIZER INC-2008029546

PATIENT
  Sex: Female

DRUGS (1)
  1. CELEBRA [Suspect]
     Route: 048

REACTIONS (1)
  - RECTAL CANCER [None]
